FAERS Safety Report 8863292 (Version 1)
Quarter: 2012Q4

REPORT INFORMATION
  Report Type: 
  Country: CA (occurrence: CA)
  Receive Date: 20121025
  Receipt Date: 20121025
  Transmission Date: 20130627
  Serious: Yes (Other)
  Sender: FDA-Public Use
  Company Number: PHMT2006CA00516

PATIENT
  Sex: Male

DRUGS (2)
  1. SANDOSTATIN LAR [Suspect]
     Indication: CARCINOID TUMOUR
     Dosage: 20 mg, once a month
     Dates: start: 20031212
  2. ALTACE [Concomitant]

REACTIONS (6)
  - Prostatomegaly [Unknown]
  - Haematuria [Recovered/Resolved]
  - Haemorrhage urinary tract [Recovered/Resolved]
  - Pancreatitis [Unknown]
  - Blood glucose increased [Unknown]
  - Bradycardia [Unknown]
